FAERS Safety Report 15062077 (Version 1)
Quarter: 2018Q2

REPORT INFORMATION
  Report Type: Spontaneous
  Country: US (occurrence: US)
  Receive Date: 20180625
  Receipt Date: 20180625
  Transmission Date: 20180711
  Serious: No
  Sender: FDA-Public Use
  Company Number: US-009507513-1806USA008684

PATIENT
  Sex: Female

DRUGS (1)
  1. NEXPLANON [Suspect]
     Active Substance: ETONOGESTREL
     Dosage: 1 NEXPLANON ONCE
     Route: 059

REACTIONS (2)
  - Complication of device insertion [Recovered/Resolved]
  - Product quality issue [Recovered/Resolved]
